FAERS Safety Report 4586836-5 (Version None)
Quarter: 2005Q1

REPORT INFORMATION
  Report Type: 
  Country: None (occurrence: None)
  Receive Date: 20050215
  Receipt Date: 20050209
  Transmission Date: 20050727
  Serious: Yes (Death, Other)
  Sender: FDA-Public Use
  Company Number: 2005AD000014

PATIENT
  Age: 55 Year
  Sex: Female

DRUGS (2)
  1. KEFLEX [Suspect]
     Indication: PELVIC INFLAMMATORY DISEASE
     Dosage: 3 DF, QD
  2. METRONIDAZOLE [Concomitant]

REACTIONS (2)
  - CONFUSIONAL STATE [None]
  - HALLUCINATION [None]
